FAERS Safety Report 7791406-1 (Version None)
Quarter: 2011Q4

REPORT INFORMATION
  Report Type: 
  Country: None (occurrence: None)
  Receive Date: 20111003
  Receipt Date: 20110921
  Transmission Date: 20120403
  Serious: Yes (Life-Threatening, Hospitalization, Other)
  Sender: FDA-Public Use
  Company Number: FR-JNJFOC-20110800493

PATIENT
  Sex: Female
  Weight: 1.82 kg

DRUGS (1)
  1. REMICADE [Suspect]
     Indication: MATERNAL EXPOSURE DURING PREGNANCY
     Route: 064
     Dates: end: 20110404

REACTIONS (5)
  - SEPSIS [None]
  - NEUTROPENIA [None]
  - PREMATURE BABY [None]
  - OMPHALITIS [None]
  - ENTEROBACTER INFECTION [None]
